FAERS Safety Report 10063417 (Version 1)
Quarter: 2014Q2

REPORT INFORMATION
  Report Type: Spontaneous
  Country: US (occurrence: US)
  Receive Date: 20140407
  Receipt Date: 20140407
  Transmission Date: 20141212
  Serious: No
  Sender: FDA-Public Use
  Company Number: US-PFIZER INC-2014095968

PATIENT
  Age: 65 Year
  Sex: Female

DRUGS (7)
  1. ZITHROMAX [Suspect]
     Dosage: UNK
  2. AMOXIL [Suspect]
     Dosage: UNK
  3. BIAXIN [Suspect]
     Dosage: UNK
  4. DARVON [Suspect]
     Dosage: UNK
  5. DARVOCET [Suspect]
     Dosage: UNK
  6. WYGESIC [Suspect]
     Dosage: UNK
  7. PERCODAN [Suspect]
     Dosage: UNK

REACTIONS (1)
  - Drug hypersensitivity [Unknown]
